FAERS Safety Report 8079008-3 (Version None)
Quarter: 2012Q1

REPORT INFORMATION
  Report Type: 
  Country: None (occurrence: None)
  Receive Date: 20120128
  Receipt Date: 20110621
  Transmission Date: 20120608
  Serious: Yes (Other)
  Sender: FDA-Public Use
  Company Number: US-ABBOTT-11P-163-0734313-00

PATIENT
  Sex: Male
  Weight: 77.18 kg

DRUGS (1)
  1. HUMIRA [Suspect]
     Indication: PSORIATIC ARTHROPATHY
     Route: 058
     Dates: start: 20110501, end: 20110614

REACTIONS (5)
  - PAIN [None]
  - OROPHARYNGEAL PAIN [None]
  - DEHYDRATION [None]
  - OROPHARYNGITIS FUNGAL [None]
  - PYREXIA [None]
